FAERS Safety Report 25526255 (Version 1)
Quarter: 2025Q3

REPORT INFORMATION
  Report Type: Spontaneous
  Country: CN (occurrence: CN)
  Receive Date: 20250707
  Receipt Date: 20250707
  Transmission Date: 20251021
  Serious: Yes (Hospitalization, Other)
  Sender: PFIZER
  Company Number: CN-PFIZER INC-PV202500078888

PATIENT
  Age: 66 Year
  Sex: Male

DRUGS (2)
  1. VFEND [Suspect]
     Active Substance: VORICONAZOLE
     Indication: Gastrointestinal perforation
     Dosage: 400 MG, Q12H
     Route: 041
     Dates: start: 20250615, end: 20250615
  2. VFEND [Suspect]
     Active Substance: VORICONAZOLE
     Indication: Candida infection
     Dosage: 0.2 G, Q12H
     Route: 041
     Dates: start: 20250616, end: 20250619

REACTIONS (3)
  - Hallucination [Recovering/Resolving]
  - Disorganised speech [Recovering/Resolving]
  - Drug level increased [Recovering/Resolving]

NARRATIVE: CASE EVENT DATE: 20250619
